FAERS Safety Report 10387957 (Version 1)
Quarter: 2014Q1

REPORT INFORMATION
  Report Type: Spontaneous
  Country: US (occurrence: None)
  Receive Date: 20140306
  Receipt Date: 20140306
  Transmission Date: 20141002
  Serious: Yes (Hospitalization)
  Sender: FDA-Public Use
  Company Number: 163-21880-13110318

PATIENT
  Age: 87 Year
  Sex: Female
  Weight: 54.43 kg

DRUGS (8)
  1. REVLIMID (LENALIDOMIDE) (10 MILLIGRAM, CAPSULES) [Suspect]
     Indication: PLASMA CELL MYELOMA
     Route: 048
     Dates: start: 20121114
  2. COUMADIN (WARFARIN SODIUM) [Concomitant]
  3. I-CAP AREDS [Concomitant]
  4. METOPROLOL SUCCINATE [Concomitant]
  5. PACERONE (AMIODARONE HYDROCHLORIDE) [Concomitant]
  6. METANX [Concomitant]
  7. POTASSIUM [Concomitant]
  8. CALCIUM [Concomitant]

REACTIONS (3)
  - Chest pain [None]
  - Pneumonia [None]
  - Full blood count abnormal [None]
